FAERS Safety Report 6448855-3 (Version None)
Quarter: 2009Q4

REPORT INFORMATION
  Report Type: 
  Country: None (occurrence: None)
  Receive Date: 20091120
  Receipt Date: 20091106
  Transmission Date: 20100525
  Serious: Yes (Other)
  Sender: FDA-Public Use
  Company Number: IE-GENENTECH-292947

PATIENT
  Age: 55 Year
  Sex: Female

DRUGS (4)
  1. MABTHERA [Suspect]
     Indication: RHEUMATOID ARTHRITIS
     Dosage: 1 G, UNK
     Route: 042
     Dates: start: 20091007, end: 20091007
  2. PIRITON [Concomitant]
     Indication: DRUG USE FOR UNKNOWN INDICATION
  3. PARACETAMOL [Concomitant]
     Indication: DRUG USE FOR UNKNOWN INDICATION
  4. METHYLPREDNISOLONE 4MG TAB [Concomitant]
     Indication: DRUG USE FOR UNKNOWN INDICATION

REACTIONS (3)
  - DYSGEUSIA [None]
  - FLUSHING [None]
  - PARAESTHESIA [None]
